FAERS Safety Report 5181998-3 (Version None)
Quarter: 2006Q4

REPORT INFORMATION
  Report Type: 
  Country: None (occurrence: None)
  Receive Date: 20061220
  Receipt Date: 20060417
  Transmission Date: 20070319
  Serious: No
  Sender: FDA-Public Use
  Company Number: US-GLAXOSMITHKLINE-A0602026A

PATIENT
  Age: 69 Year
  Sex: Male

DRUGS (1)
  1. COMMIT [Suspect]
     Dates: start: 20060103

REACTIONS (3)
  - INTENTIONAL DRUG MISUSE [None]
  - NAUSEA [None]
  - NICOTINE DEPENDENCE [None]
